FAERS Safety Report 14712140 (Version 1)
Quarter: 2018Q2

REPORT INFORMATION
  Report Type: Spontaneous
  Country: US (occurrence: US)
  Receive Date: 20180404
  Receipt Date: 20180404
  Transmission Date: 20180711
  Serious: No
  Sender: FDA-Public Use
  Company Number: US-SA-2017SA082683

PATIENT
  Age: 48 Year
  Sex: Female
  Weight: 159 kg

DRUGS (1)
  1. ALLEGRA-D 24 HOUR [Suspect]
     Active Substance: FEXOFENADINE HYDROCHLORIDE\PSEUDOEPHEDRINE HYDROCHLORIDE
     Indication: PRURITUS
     Dosage: FREQUENCY NOT DAILY; START DATE COUPLE DAYS AFTER 4
     Route: 065
     Dates: start: 20170406, end: 20170428

REACTIONS (2)
  - Pruritus [Unknown]
  - Drug effect incomplete [Unknown]

NARRATIVE: CASE EVENT DATE: 20170406
